FAERS Safety Report 16797073 (Version 2)
Quarter: 2019Q3

REPORT INFORMATION
  Report Type: Spontaneous
  Country: CN (occurrence: CN)
  Receive Date: 20190911
  Receipt Date: 20190911
  Transmission Date: 20191005
  Serious: Yes (Other)
  Sender: FDA-Public Use
  Company Number: PHHY2019CN211306

PATIENT
  Age: 30 Year
  Sex: Female

DRUGS (2)
  1. CICLOSPORIN [Suspect]
     Active Substance: CYCLOSPORINE
     Indication: STILL^S DISEASE
     Dosage: 75 MG, BID
     Route: 065
  2. PREDNISONE. [Suspect]
     Active Substance: PREDNISONE
     Indication: STILL^S DISEASE
     Dosage: UNK UNK, QD
     Route: 065

REACTIONS (7)
  - Still^s disease [Unknown]
  - Hepatosplenomegaly [Unknown]
  - Product use in unapproved indication [Unknown]
  - Joint swelling [Unknown]
  - Rash [Unknown]
  - Pain [Unknown]
  - Pyrexia [Unknown]
